FAERS Safety Report 6741150-4 (Version None)
Quarter: 2010Q2

REPORT INFORMATION
  Report Type: 
  Country: None (occurrence: None)
  Receive Date: 20100526
  Receipt Date: 20100520
  Transmission Date: 20101027
  Serious: Yes (Disabling)
  Sender: FDA-Public Use
  Company Number: CA-BRISTOL-MYERS SQUIBB COMPANY-14603575

PATIENT
  Age: 71 Year
  Sex: Female

DRUGS (3)
  1. AVALIDE [Suspect]
     Indication: HYPERTENSION
     Dosage: 1DF=150MG/12.5MG;TOOK 2 PILLS.
     Route: 048
     Dates: start: 20091001, end: 20100101
  2. AVAPRO [Suspect]
     Indication: BLOOD PRESSURE
     Route: 048
     Dates: start: 20100101
  3. CRESTOR [Suspect]
     Indication: BLOOD CHOLESTEROL
     Route: 048
     Dates: start: 20091201, end: 20100101

REACTIONS (5)
  - ASTHENIA [None]
  - DRY MOUTH [None]
  - HAEMORRHAGE [None]
  - INSOMNIA [None]
  - MYALGIA [None]
